FAERS Safety Report 9332152 (Version 2)
Quarter: 2013Q2

REPORT INFORMATION
  Report Type: Spontaneous
  Country: US (occurrence: US)
  Receive Date: 20130606
  Receipt Date: 20130620
  Transmission Date: 20140414
  Serious: Yes (Other)
  Sender: FDA-Public Use
  Company Number: US-BIOGENIDEC-2013BI048666

PATIENT
  Age: 73 Year
  Sex: Female

DRUGS (1)
  1. AVONEX [Suspect]
     Indication: MULTIPLE SCLEROSIS
     Route: 030

REACTIONS (5)
  - Knee arthroplasty [Recovered/Resolved]
  - Injection site haemorrhage [Recovered/Resolved]
  - General physical health deterioration [Unknown]
  - Drug ineffective [Unknown]
  - Emotional distress [Unknown]
